FAERS Safety Report 18580729 (Version 1)
Quarter: 2020Q4

REPORT INFORMATION
  Report Type: Spontaneous
  Country: CH (occurrence: CH)
  Receive Date: 20201204
  Receipt Date: 20201204
  Transmission Date: 20210114
  Serious: Yes (Death, Other)
  Sender: FDA-Public Use
  Company Number: CH-JNJFOC-20201152436

PATIENT
  Age: 64 Year
  Sex: Male
  Weight: 67.06 kg

DRUGS (10)
  1. INVOKANA [Suspect]
     Active Substance: CANAGLIFLOZIN
     Indication: PROPHYLAXIS
     Route: 048
     Dates: start: 20200703
  2. ZANIDIP [Concomitant]
     Active Substance: LERCANIDIPINE HYDROCHLORIDE
     Indication: HYPERTENSION
     Dates: start: 20160315
  3. JINARC [Suspect]
     Active Substance: TOLVAPTAN
     Indication: CONGENITAL CYSTIC KIDNEY DISEASE
     Route: 048
     Dates: start: 20171229, end: 20180129
  4. JINARC [Suspect]
     Active Substance: TOLVAPTAN
     Route: 048
     Dates: start: 20180315
  5. JINARC [Suspect]
     Active Substance: TOLVAPTAN
     Route: 048
     Dates: start: 20180315
  6. LERCANIDIPINE [Concomitant]
     Active Substance: LERCANIDIPINE
     Indication: HYPERTENSION
     Dates: start: 20180711
  7. LOSARTAN. [Concomitant]
     Active Substance: LOSARTAN
     Indication: HYPERTENSION
     Dates: start: 20191118
  8. JINARC [Suspect]
     Active Substance: TOLVAPTAN
     Route: 048
     Dates: start: 20180130, end: 20180314
  9. JINARC [Suspect]
     Active Substance: TOLVAPTAN
     Route: 048
     Dates: start: 20171229, end: 20180129
  10. JINARC [Suspect]
     Active Substance: TOLVAPTAN
     Route: 048
     Dates: start: 20180130, end: 20180314

REACTIONS (1)
  - Sudden cardiac death [Fatal]
